FAERS Safety Report 5804955-X (Version None)
Quarter: 2008Q3

REPORT INFORMATION
  Report Type: 
  Country: None (occurrence: None)
  Receive Date: 20080709
  Receipt Date: 20080627
  Transmission Date: 20090109
  Serious: Yes (Hospitalization, Other)
  Sender: FDA-Public Use
  Company Number: ZA-PFIZER INC-2008054015

PATIENT
  Age: 42 Year
  Sex: Male

DRUGS (3)
  1. NEURONTIN [Suspect]
     Indication: EPILEPSY
     Route: 048
  2. EPILIM [Suspect]
     Indication: EPILEPSY
     Route: 048
  3. SERTRALINE [Concomitant]

REACTIONS (2)
  - ALCOHOL PROBLEM [None]
  - CONVULSION [None]
